FAERS Safety Report 9311192 (Version 1)
Quarter: 2013Q2

REPORT INFORMATION
  Report Type: Spontaneous
  Country: US (occurrence: US)
  Receive Date: 20130528
  Receipt Date: 20130528
  Transmission Date: 20140414
  Serious: No
  Sender: FDA-Public Use
  Company Number: US-BAYER-2013-064867

PATIENT
  Sex: Male
  Weight: 70.3 kg

DRUGS (12)
  1. BETASERON [Suspect]
     Indication: MULTIPLE SCLEROSIS
     Dosage: UNK
     Route: 058
     Dates: start: 2006
  2. AMPYRA [Concomitant]
  3. ASA [Concomitant]
  4. AVAPRO [Concomitant]
  5. BACLOFEN [Concomitant]
  6. BYSTOLIC [Concomitant]
  7. GABAPENTIN [Concomitant]
  8. MOTRIN [Concomitant]
  9. OMEPRAZOLE [Concomitant]
  10. PROVIGIL [Concomitant]
  11. UROXATRAL [Concomitant]
  12. VYTORIN [Concomitant]

REACTIONS (1)
  - Influenza like illness [Unknown]
